FAERS Safety Report 4646921-6 (Version None)
Quarter: 2005Q2

REPORT INFORMATION
  Report Type: 
  Country: None (occurrence: None)
  Receive Date: 20050427
  Receipt Date: 20050421
  Transmission Date: 20051028
  Serious: Yes (Hospitalization)
  Sender: FDA-Public Use
  Company Number: DE-MERCK-0504DEU00160

PATIENT
  Sex: Female

DRUGS (1)
  1. VIOXX [Suspect]
     Route: 048
     Dates: start: 20010501, end: 20041101

REACTIONS (5)
  - CORONARY ARTERY SURGERY [None]
  - MITRAL VALVE REPLACEMENT [None]
  - PULMONARY EMBOLISM [None]
  - PULMONARY OEDEMA [None]
  - THROMBOSIS [None]
